FAERS Safety Report 17263260 (Version 1)
Quarter: 2020Q1

REPORT INFORMATION
  Report Type: Spontaneous
  Country: US (occurrence: US)
  Receive Date: 20200112
  Receipt Date: 20200112
  Transmission Date: 20200409
  Serious: Yes (Life-Threatening, Hospitalization, Disabling)
  Sender: FDA-Public Use
  Company Number: None

PATIENT
  Age: 29 Year
  Sex: Female
  Weight: 67.5 kg

DRUGS (1)
  1. CIPRO [Suspect]
     Active Substance: CIPROFLOXACIN HYDROCHLORIDE
     Route: 048
     Dates: start: 20191102, end: 20191108

REACTIONS (7)
  - Blood urea increased [None]
  - Palpitations [None]
  - Tendonitis [None]
  - Renal pain [None]
  - Arrhythmia [None]
  - Blood creatine increased [None]
  - Panic attack [None]

NARRATIVE: CASE EVENT DATE: 20191111
